FAERS Safety Report 16446784 (Version 2)
Quarter: 2019Q2

REPORT INFORMATION
  Report Type: Report from Study
  Country: US (occurrence: US)
  Receive Date: 20190618
  Receipt Date: 20190620
  Transmission Date: 20190711
  Serious: Yes (Death)
  Sender: FDA-Public Use
  Company Number: US-HLSUS-2019-US-000527

PATIENT
  Age: 48 Year
  Sex: Female

DRUGS (1)
  1. CLOZARIL [Suspect]
     Active Substance: CLOZAPINE
     Route: 048

REACTIONS (2)
  - Neutrophil count increased [Recovered/Resolved]
  - Cardiomegaly [Fatal]

NARRATIVE: CASE EVENT DATE: 20170823
